FAERS Safety Report 18466517 (Version 1)
Quarter: 2020Q4

REPORT INFORMATION
  Report Type: Spontaneous
  Country: FR (occurrence: FR)
  Receive Date: 20201105
  Receipt Date: 20201105
  Transmission Date: 20210114
  Serious: Yes (Hospitalization)
  Sender: FDA-Public Use
  Company Number: FR-ACCORD-207396

PATIENT
  Age: 51 Year
  Sex: Female
  Weight: 45 kg

DRUGS (3)
  1. METHYLPREDNISOLONE MYLAN [Suspect]
     Active Substance: METHYLPREDNISOLONE
     Indication: CHEMOTHERAPY SIDE EFFECT PROPHYLAXIS
     Route: 042
     Dates: start: 20200709, end: 20200820
  2. ATROPINE SULFATE AGUETTANT [Suspect]
     Active Substance: ATROPINE SULFATE
     Indication: CHEMOTHERAPY SIDE EFFECT PROPHYLAXIS
     Dosage: STRENGTH: 0.25 MG / ML
     Route: 042
     Dates: start: 20200709, end: 20200917
  3. ONDANSETRON ACCORD [Suspect]
     Active Substance: ONDANSETRON
     Indication: CHEMOTHERAPY SIDE EFFECT PROPHYLAXIS
     Dosage: STRENGTH:  2 MG / ML
     Route: 042
     Dates: start: 20200709, end: 20200820

REACTIONS (2)
  - Infusion related reaction [Recovered/Resolved]
  - Injection related reaction [Recovered/Resolved]

NARRATIVE: CASE EVENT DATE: 20200723
